FAERS Safety Report 10405347 (Version 2)
Quarter: 2014Q4

REPORT INFORMATION
  Report Type: Report from Study
  Country: DE (occurrence: DE)
  Receive Date: 20140825
  Receipt Date: 20141121
  Transmission Date: 20150528
  Serious: Yes (Hospitalization)
  Sender: FDA-Public Use
  Company Number: DE-JNJFOC-20140818825

PATIENT
  Age: 72 Year
  Sex: Male
  Weight: 94 kg

DRUGS (9)
  1. XARELTO [Suspect]
     Active Substance: RIVAROXABAN
     Indication: THROMBOSIS PROPHYLAXIS
     Route: 048
     Dates: start: 20130215
  2. XARELTO [Suspect]
     Active Substance: RIVAROXABAN
     Indication: CEREBROVASCULAR ACCIDENT PROPHYLAXIS
     Route: 048
     Dates: start: 20130215
  3. DECORTIN [Concomitant]
     Active Substance: PREDNISONE
     Route: 065
     Dates: start: 20051001
  4. LISIHEXAL [Concomitant]
     Route: 065
     Dates: start: 20080201
  5. XARELTO [Suspect]
     Active Substance: RIVAROXABAN
     Indication: ATRIAL FIBRILLATION
     Route: 048
     Dates: start: 20130215
  6. ASPIRIN. [Concomitant]
     Active Substance: ASPIRIN
     Route: 065
     Dates: start: 20130206
  7. CLOPIDOGREL [Concomitant]
     Active Substance: CLOPIDOGREL BISULFATE
     Route: 065
     Dates: start: 20130206
  8. CONCOR [Concomitant]
     Active Substance: BISOPROLOL FUMARATE
     Route: 065
     Dates: start: 20130206
  9. SIMVAHEXAL [Concomitant]
     Active Substance: SIMVASTATIN
     Route: 065
     Dates: start: 20130206

REACTIONS (3)
  - Atrial fibrillation [Recovered/Resolved]
  - Synovitis [Recovered/Resolved]
  - Synovitis [Recovered/Resolved]

NARRATIVE: CASE EVENT DATE: 20131209
